FAERS Safety Report 5918419-6 (Version None)
Quarter: 2008Q4

REPORT INFORMATION
  Report Type: 
  Country: None (occurrence: None)
  Receive Date: 20081014
  Receipt Date: 20081014
  Transmission Date: 20090506
  Serious: Yes (Other)
  Sender: FDA-Public Use
  Company Number: None

PATIENT
  Age: 65 Year
  Sex: Female
  Weight: 56.6996 kg

DRUGS (6)
  1. HUMIRA [Suspect]
     Indication: RHEUMATOID ARTHRITIS
     Dosage: 40MG 057
     Dates: start: 20071105, end: 20080909
  2. METHOTREXATE [Concomitant]
  3. PREDNISONE TAB [Concomitant]
  4. DETROL [Concomitant]
  5. EFFEXOR [Concomitant]
  6. VIT D [Concomitant]

REACTIONS (2)
  - CARCINOEMBRYONIC ANTIGEN INCREASED [None]
  - PANCREATIC CYST [None]
